FAERS Safety Report 14609218 (Version 5)
Quarter: 2019Q2

REPORT INFORMATION
  Report Type: Spontaneous
  Country: JP (occurrence: JP)
  Receive Date: 20180307
  Receipt Date: 20190624
  Transmission Date: 20190711
  Serious: Yes (Hospitalization, Other)
  Sender: FDA-Public Use
  Company Number: JP-BIOGEN-2018BI00537240

PATIENT
  Age: 9 Month
  Sex: Female
  Weight: 8.5 kg

DRUGS (7)
  1. MIDAZOLAM [Suspect]
     Active Substance: MIDAZOLAM HYDROCHLORIDE
     Indication: PRODUCT USED FOR UNKNOWN INDICATION
     Route: 065
  2. SPINRAZA [Suspect]
     Active Substance: NUSINERSEN
     Route: 050
     Dates: start: 20170904, end: 20170904
  3. SPINRAZA [Suspect]
     Active Substance: NUSINERSEN
     Indication: SPINAL MUSCULAR ATROPHY
     Route: 050
     Dates: start: 20170807, end: 20170807
  4. SPINRAZA [Suspect]
     Active Substance: NUSINERSEN
     Route: 050
     Dates: start: 20171013, end: 20171013
  5. SPINRAZA [Suspect]
     Active Substance: NUSINERSEN
     Route: 050
     Dates: start: 20170821, end: 20170821
  6. FENTANYL CITRATE. [Suspect]
     Active Substance: FENTANYL CITRATE
     Indication: PRODUCT USED FOR UNKNOWN INDICATION
     Route: 065
  7. SPINRAZA [Suspect]
     Active Substance: NUSINERSEN
     Route: 050
     Dates: start: 20180213, end: 20180213

REACTIONS (17)
  - Pulmonary interstitial emphysema syndrome [Recovered/Resolved]
  - Tachypnoea [Unknown]
  - Pneumothorax [Unknown]
  - Muscle tightness [Unknown]
  - Gastric haemorrhage [Recovered/Resolved]
  - Respiratory syncytial virus infection [Recovered/Resolved]
  - Allergic gastroenteritis [Unknown]
  - Tremor [Unknown]
  - Anaemia [Unknown]
  - Atelectasis [Unknown]
  - Pneumonia [Recovered/Resolved]
  - Duodenal neoplasm [Unknown]
  - Pneumomediastinum [Unknown]
  - Pseudomonas test positive [Unknown]
  - Vitamin K deficiency [Unknown]
  - Mood altered [Unknown]
  - Physical deconditioning [Unknown]

NARRATIVE: CASE EVENT DATE: 20171228
